FAERS Safety Report 22180255 (Version 7)
Quarter: 2024Q4

REPORT INFORMATION
  Report Type: Spontaneous
  Country: US (occurrence: US)
  Receive Date: 20230406
  Receipt Date: 20241230
  Transmission Date: 20250114
  Serious: No
  Sender: PFIZER
  Company Number: US-PFIZER INC-PV202300062668

PATIENT
  Age: 71 Year
  Sex: Male
  Weight: 99.79 kg

DRUGS (2)
  1. MEKTOVI [Suspect]
     Active Substance: BINIMETINIB
     Indication: Malignant melanoma
     Dosage: 45 MG (3 IN THE MORNING AND 3 AT NIGHT), 2X/DAY
     Route: 048
  2. BRAFTOVI [Suspect]
     Active Substance: ENCORAFENIB
     Indication: Malignant melanoma
     Dosage: 450 MG DAILY (6 CAPSULES, 75 MG, A DAY)
     Route: 048

REACTIONS (2)
  - Cerebral disorder [Unknown]
  - Nausea [Unknown]
